FAERS Safety Report 18537704 (Version 2)
Quarter: 2022Q1

REPORT INFORMATION
  Report Type: Spontaneous
  Country: FR (occurrence: FR)
  Receive Date: 20201124
  Receipt Date: 20220316
  Transmission Date: 20220424
  Serious: Yes (Life-Threatening, Hospitalization, Other)
  Sender: FDA-Public Use
  Company Number: FR-ACTAVIS-2012-03503

PATIENT
  Age: 64 Year
  Sex: Female

DRUGS (5)
  1. ACETAMINOPHEN [Suspect]
     Active Substance: ACETAMINOPHEN
     Indication: Product used for unknown indication
     Dosage: 100 GRAM, (1.66 G/KG))
     Route: 048
  2. ACETAMINOPHEN [Suspect]
     Active Substance: ACETAMINOPHEN
     Indication: Toxicity to various agents
  3. ETHYLENE GLYCOL [Concomitant]
     Active Substance: ETHYLENE GLYCOL
     Indication: Product used for unknown indication
     Dosage: UNK
     Route: 065
  4. METHYL ALCOHOL [Concomitant]
     Active Substance: METHYL ALCOHOL
     Indication: Product used for unknown indication
     Dosage: UNK
     Route: 065
  5. SALICYLIC ACID [Concomitant]
     Active Substance: SALICYLIC ACID
     Indication: Product used for unknown indication
     Dosage: UNK
     Route: 065

REACTIONS (16)
  - Coma [Recovered/Resolved]
  - Loss of consciousness [Recovered/Resolved]
  - Hepatitis toxic [Unknown]
  - Rhabdomyolysis [Unknown]
  - Hypothermia [Recovered/Resolved]
  - Electrocardiogram QRS complex prolonged [Recovered/Resolved]
  - Hypotension [Recovered/Resolved]
  - Metabolic acidosis [Recovered/Resolved]
  - Bradyarrhythmia [Recovered/Resolved]
  - Toxicity to various agents [Unknown]
  - Overdose [Recovering/Resolving]
  - Coagulopathy [Unknown]
  - Suicide attempt [Unknown]
  - Bradycardia [Unknown]
  - Poisoning [Recovering/Resolving]
  - Cardiovascular disorder [Recovering/Resolving]
